FAERS Safety Report 13609108 (Version 2)
Quarter: 2018Q2

REPORT INFORMATION
  Report Type: Report from Study
  Country: BR (occurrence: BR)
  Receive Date: 20170602
  Receipt Date: 20180606
  Transmission Date: 20180711
  Serious: Yes (Other)
  Sender: FDA-Public Use
  Company Number: PHHY2017BR081516

PATIENT
  Age: 59 Year
  Sex: Female
  Weight: 59 kg

DRUGS (2)
  1. INFLUENZA VACCINE [Suspect]
     Active Substance: INFLUENZA VIRUS VACCINE
     Indication: PRODUCT USED FOR UNKNOWN INDICATION
     Route: 065
  2. ACLASTA [Suspect]
     Active Substance: ZOLEDRONIC ACID
     Indication: OSTEOPOROSIS
     Dosage: 1 DF (5 MG/100 ML), Q12MO
     Route: 042
     Dates: start: 20170413

REACTIONS (16)
  - Arthralgia [Unknown]
  - Nasopharyngitis [Unknown]
  - Tibia fracture [Unknown]
  - Moaning [Unknown]
  - Pain [Unknown]
  - Drug intolerance [Unknown]
  - Joint swelling [Unknown]
  - Malaise [Recovering/Resolving]
  - Dyspnoea [Unknown]
  - Fall [Unknown]
  - Body height decreased [Not Recovered/Not Resolved]
  - Cough [Unknown]
  - Pyrexia [Recovered/Resolved]
  - Feeling cold [Recovered/Resolved]
  - Bone pain [Recovered/Resolved]
  - Pain [Recovered/Resolved]

NARRATIVE: CASE EVENT DATE: 20170413
